FAERS Safety Report 8155511-2 (Version None)
Quarter: 2012Q1

REPORT INFORMATION
  Report Type: 
  Country: None (occurrence: None)
  Receive Date: 20120215
  Receipt Date: 20120206
  Transmission Date: 20120608
  Serious: Yes (Other)
  Sender: FDA-Public Use
  Company Number: 2012SP007451

PATIENT

DRUGS (2)
  1. PEG-INTRON [Suspect]
     Indication: HEPATIC CIRRHOSIS
     Dosage: 1.5 MCG/KG;QW;SC
     Route: 058
  2. REBETOL [Suspect]
     Indication: HEPATIC CIRRHOSIS
     Dosage: PO
     Route: 048

REACTIONS (5)
  - HEPATIC NEOPLASM MALIGNANT [None]
  - DEPRESSION [None]
  - MENINGITIS PNEUMOCOCCAL [None]
  - THROMBOCYTOPENIA [None]
  - NEUTROPENIA [None]
